FAERS Safety Report 25580726 (Version 1)
Quarter: 2025Q3

REPORT INFORMATION
  Report Type: Spontaneous
  Country: US (occurrence: US)
  Receive Date: 20250718
  Receipt Date: 20250718
  Transmission Date: 20251020
  Serious: No
  Sender: NOVO NORDISK
  Company Number: US-NOVOPROD-1427437

PATIENT
  Sex: Female

DRUGS (1)
  1. WEGOVY [Suspect]
     Active Substance: SEMAGLUTIDE
     Indication: Weight control
     Dosage: 0.25 MG, QW
     Route: 058
     Dates: start: 20250224

REACTIONS (4)
  - Pyrexia [Recovered/Resolved]
  - Dizziness [Recovered/Resolved]
  - Constipation [Recovering/Resolving]
  - Wrong technique in product usage process [Unknown]
